FAERS Safety Report 8508121-9 (Version None)
Quarter: 2012Q3

REPORT INFORMATION
  Report Type: 
  Country: None (occurrence: None)
  Receive Date: 20120713
  Receipt Date: 20120703
  Transmission Date: 20120928
  Serious: Yes (Hospitalization, Other)
  Sender: FDA-Public Use
  Company Number: FR-JNJFOC-20120703106

PATIENT

DRUGS (4)
  1. INFLIXIMAB, RECOMBINANT [Suspect]
     Dosage: 3-7 MG/KG EVERY 4-6 WEEKS
     Route: 042
  2. METHOTREXATE [Concomitant]
     Indication: PRODUCT USED FOR UNKNOWN INDICATION
     Route: 065
  3. INFLIXIMAB, RECOMBINANT [Suspect]
     Indication: TAKAYASU'S ARTERITIS
     Route: 042
  4. PREDNISONE [Concomitant]
     Indication: PRODUCT USED FOR UNKNOWN INDICATION
     Route: 065

REACTIONS (1)
  - POST PROCEDURAL INFECTION [None]
